FAERS Safety Report 9008935 (Version 2)
Quarter: 2013Q1

REPORT INFORMATION
  Report Type: Spontaneous
  Country: US (occurrence: US)
  Receive Date: 20130111
  Receipt Date: 20130201
  Transmission Date: 20140127
  Serious: No
  Sender: FDA-Public Use
  Company Number: US-ASTRAZENECA-2012SE94266

PATIENT
  Sex: Female

DRUGS (3)
  1. SYMBICORT PMDI [Suspect]
     Indication: ASTHMA
     Dosage: 160/4.5 MCG, 2 PUFFS  BID
     Route: 055
  2. SYMBICORT PMDI [Suspect]
     Indication: ASTHMA
     Dosage: 160/4.5 MCG, AS REQUIRED AS RESCUE INHALER
     Route: 055
  3. VENTOLIN [Concomitant]
     Indication: PROPHYLAXIS AGAINST BRONCHOSPASM

REACTIONS (3)
  - Wheezing [Unknown]
  - Malaise [Unknown]
  - Off label use [Unknown]
